FAERS Safety Report 7508584-1 (Version None)
Quarter: 2011Q2

REPORT INFORMATION
  Report Type: 
  Country: None (occurrence: None)
  Receive Date: 20110527
  Receipt Date: 20100623
  Transmission Date: 20111010
  Serious: No
  Sender: FDA-Public Use
  Company Number: A0867748A

PATIENT
  Age: 46 Year
  Sex: Female
  Weight: 71 kg

DRUGS (16)
  1. XANAX [Concomitant]
     Dosage: 1MG AS REQUIRED
     Route: 048
  2. LUNESTA [Concomitant]
     Route: 048
  3. WARFARIN SODIUM [Concomitant]
  4. ELIDEL [Concomitant]
     Dosage: 1APP TWICE PER DAY
     Route: 061
  5. OXYCONTIN [Concomitant]
     Dosage: 80MG TWICE PER DAY
     Route: 048
  6. METOPROLOL TARTRATE [Concomitant]
     Dosage: 25MG TWICE PER DAY
     Route: 048
  7. PERCOCET [Concomitant]
     Route: 048
  8. PRILOSEC [Concomitant]
     Dosage: 20MG AS REQUIRED
     Route: 048
  9. SOMA [Concomitant]
     Dosage: 350MG THREE TIMES PER DAY
     Route: 048
  10. NEOSPORIN [Concomitant]
     Route: 061
  11. SYNTHROID [Concomitant]
     Dosage: 175MCG PER DAY
  12. NASONEX [Concomitant]
     Dosage: 1PUFF AS DIRECTED
     Route: 045
  13. FLOLAN [Suspect]
     Indication: PULMONARY ARTERIAL HYPERTENSION
     Dosage: 109UGKM CONTINUOUS
     Route: 042
     Dates: start: 19950801
  14. FLOLAN [Suspect]
     Indication: PULMONARY ARTERIAL HYPERTENSION
     Route: 042
     Dates: start: 19950801
  15. COMPAZINE [Concomitant]
     Route: 048
  16. LASIX [Concomitant]
     Dosage: 10MG AS REQUIRED

REACTIONS (2)
  - FIBROMYALGIA [None]
  - ARTHRALGIA [None]
